FAERS Safety Report 9175382 (Version 1)
Quarter: 2013Q1

REPORT INFORMATION
  Report Type: Spontaneous
  Country: US (occurrence: US)
  Receive Date: 20130320
  Receipt Date: 20130320
  Transmission Date: 20140127
  Serious: Yes (Life-Threatening, Hospitalization, Other)
  Sender: FDA-Public Use
  Company Number: US-ASTRAZENECA-2013SE17772

PATIENT
  Age: 8 Year
  Sex: Female
  Weight: 25.4 kg

DRUGS (4)
  1. SYMBICORT [Suspect]
     Indication: ASTHMA
     Dosage: 80 MCG 2 PUFFS BID
     Route: 055
     Dates: start: 20130302
  2. PULMICORT [Suspect]
     Indication: ASTHMA
     Dosage: BID
     Route: 055
     Dates: start: 2011, end: 20130302
  3. PULMICORT [Suspect]
     Indication: ASTHMA
     Route: 055
     Dates: start: 2009, end: 20130302
  4. ALBUTEROL INHALER [Concomitant]
     Indication: PROPHYLAXIS
     Dosage: AS REQUIRED
     Route: 055

REACTIONS (4)
  - Respiratory arrest [Recovered/Resolved]
  - Asthma [Recovered/Resolved]
  - Circumstance or information capable of leading to medication error [Unknown]
  - Off label use [Unknown]
